FAERS Safety Report 12306533 (Version 1)
Quarter: 2016Q2

REPORT INFORMATION
  Report Type: Spontaneous
  Country: JP (occurrence: JP)
  Receive Date: 20160426
  Receipt Date: 20160426
  Transmission Date: 20160815
  Serious: Yes (Other)
  Sender: FDA-Public Use
  Company Number: JP-JNJFOC-20150118225

PATIENT
  Age: 82 Year
  Sex: Male

DRUGS (14)
  1. CLARITH [Concomitant]
     Active Substance: CLARITHROMYCIN
     Route: 048
  2. SODIUM ALGINATE [Concomitant]
     Active Substance: SODIUM ALGINATE
     Route: 048
  3. XARELTO [Suspect]
     Active Substance: RIVAROXABAN
     Indication: CEREBROVASCULAR ACCIDENT PROPHYLAXIS
     Route: 048
     Dates: start: 20141119, end: 20150123
  4. SUCRALFATE. [Concomitant]
     Active Substance: SUCRALFATE
     Route: 048
  5. ISOSORBIDE MONONITRATE. [Concomitant]
     Active Substance: ISOSORBIDE MONONITRATE
     Route: 065
  6. NICERGOLINE [Concomitant]
     Active Substance: NICERGOLINE
     Route: 048
  7. SENNOSIDE [Concomitant]
     Active Substance: SENNOSIDES
     Route: 048
  8. XARELTO [Suspect]
     Active Substance: RIVAROXABAN
     Indication: ATRIAL FIBRILLATION
     Route: 048
     Dates: start: 20141119, end: 20150123
  9. DANTRIUM [Concomitant]
     Active Substance: DANTROLENE SODIUM
     Route: 048
  10. LASIX [Concomitant]
     Active Substance: FUROSEMIDE
     Route: 048
  11. TAKEPRON [Concomitant]
     Active Substance: LANSOPRAZOLE
     Route: 065
  12. CONIEL [Concomitant]
     Active Substance: BENIDIPINE HYDROCHLORIDE
     Route: 048
  13. MAGMITT [Suspect]
     Active Substance: MAGNESIUM OXIDE
     Indication: PRODUCT USED FOR UNKNOWN INDICATION
     Route: 048
  14. ASPIRIN. [Concomitant]
     Active Substance: ASPIRIN
     Route: 048

REACTIONS (5)
  - White blood cell count decreased [Unknown]
  - Haematemesis [Recovering/Resolving]
  - Mouth haemorrhage [Recovering/Resolving]
  - Renal failure [Unknown]
  - Epistaxis [Recovering/Resolving]

NARRATIVE: CASE EVENT DATE: 20150122
